FAERS Safety Report 9540761 (Version 3)
Quarter: 2013Q4

REPORT INFORMATION
  Report Type: Spontaneous
  Country: US (occurrence: US)
  Receive Date: 20130920
  Receipt Date: 20131028
  Transmission Date: 20140711
  Serious: Yes (Hospitalization)
  Sender: FDA-Public Use
  Company Number: US-VERTEX PHARMACEUTICALS INC-2013-009773

PATIENT
  Age: 30 Year
  Sex: Male

DRUGS (10)
  1. KALYDECO [Suspect]
     Indication: CYSTIC FIBROSIS
     Dosage: 150 MG, BID
     Route: 048
     Dates: start: 20120512
  2. ACTIGALL [Concomitant]
     Dosage: 300 MG, TID
     Route: 048
  3. AQUADEKS [Concomitant]
     Dosage: 2 DF, QD
     Route: 048
  4. AZITHROMYCIN [Concomitant]
     Dosage: 500 MG, QOD
     Route: 048
  5. BACTRIM DS [Concomitant]
     Dosage: 1 DF, BID
     Route: 048
  6. CIPROFLOXACIN [Concomitant]
     Dosage: 750 MG, BID
     Route: 048
  7. CREON [Concomitant]
     Dosage: 2 DF, W/ MEALS AND SNACKS
     Route: 048
  8. CYPROHEPTADINE HCL [Concomitant]
     Dosage: 4 MG, TID
     Route: 048
  9. ERGOCALCIFEROL [Concomitant]
     Dosage: 50000 IU, TWICE WEEKLY
     Route: 048
  10. TOBI [Concomitant]
     Dosage: 300 MG, BID
     Route: 055

REACTIONS (1)
  - Distal ileal obstruction syndrome [Recovered/Resolved]
